FAERS Safety Report 6866526-6 (Version None)
Quarter: 2010Q2

REPORT INFORMATION
  Report Type: 
  Country: None (occurrence: None)
  Receive Date: 20100601
  Receipt Date: 20100330
  Transmission Date: 20101027
  Serious: Yes (Other)
  Sender: FDA-Public Use
  Company Number: WAES 1003USA04821

PATIENT
  Age: 68 Year
  Sex: Female

DRUGS (7)
  1. COSOPT [Suspect]
     Indication: GLAUCOMA
     Dosage: 2 DRPS/BID/OPTH
     Route: 047
     Dates: start: 20010101, end: 20090901
  2. SULFAMETHAZINE UNK [Suspect]
  3. ALPHAGAN P [Concomitant]
  4. NORVASC [Concomitant]
  5. SYNTHROID [Concomitant]
  6. TRAVATAN Z [Concomitant]
  7. XANAX [Concomitant]

REACTIONS (9)
  - CYSTITIS [None]
  - GASTRIC DISORDER [None]
  - HYPERSENSITIVITY [None]
  - LIMB DISCOMFORT [None]
  - MUSCLE DISORDER [None]
  - MUSCULAR WEAKNESS [None]
  - MYALGIA [None]
  - PAIN IN EXTREMITY [None]
  - STEVENS-JOHNSON SYNDROME [None]
